FAERS Safety Report 16910578 (Version 2)
Quarter: 2022Q2

REPORT INFORMATION
  Report Type: Report from Study
  Country: US (occurrence: US)
  Receive Date: 20191011
  Receipt Date: 20220628
  Transmission Date: 20220721
  Serious: Yes (Other)
  Sender: FDA-Public Use
  Company Number: US-JAZZ-2019-US-010365

PATIENT
  Sex: Male

DRUGS (8)
  1. XYREM [Suspect]
     Active Substance: SODIUM OXYBATE
     Indication: Narcolepsy
     Dosage: 2 G, FIRST DOSE
     Route: 048
     Dates: start: 200601, end: 200602
  2. XYREM [Suspect]
     Active Substance: SODIUM OXYBATE
     Indication: Cataplexy
     Dosage: 1 G, SECOND DOSE
     Route: 048
     Dates: start: 200601, end: 200602
  3. XYREM [Suspect]
     Active Substance: SODIUM OXYBATE
     Dosage: DOSE ADJUSTMENT
     Route: 048
     Dates: start: 200602, end: 201408
  4. XYREM [Suspect]
     Active Substance: SODIUM OXYBATE
     Dosage: 3.5 G, BID
     Route: 048
     Dates: start: 201408, end: 201501
  5. XYREM [Suspect]
     Active Substance: SODIUM OXYBATE
     Dosage: 3.5 G, BID
     Route: 048
     Dates: start: 201508
  6. MODAFINIL [Concomitant]
     Active Substance: MODAFINIL
     Indication: Product used for unknown indication
     Dosage: UNK
     Dates: start: 20051207
  7. MINERALS\VITAMINS [Concomitant]
     Active Substance: MINERALS\VITAMINS
     Indication: Product used for unknown indication
  8. SUNOSI [Concomitant]
     Active Substance: SOLRIAMFETOL
     Indication: Product used for unknown indication
     Dosage: 150 MG
     Dates: start: 20200310

REACTIONS (2)
  - Suicidal ideation [Unknown]
  - Obstructive sleep apnoea syndrome [Unknown]

NARRATIVE: CASE EVENT DATE: 20090101
